FAERS Safety Report 7774039 (Version 5)
Quarter: 2013Q1

REPORT INFORMATION
  Report Type: Spontaneous
  Country: US (occurrence: US)
  Receive Date: 20110126
  Receipt Date: 20130219
  Transmission Date: 20140127
  Serious: Yes (Hospitalization)
  Sender: FDA-Public Use
  Company Number: US-BIOGENIDEC-2011BI002068

PATIENT
  Age: 53 Year
  Sex: Female
  Weight: 77 kg

DRUGS (1)
  1. AVONEX [Suspect]
     Indication: MULTIPLE SCLEROSIS
     Route: 030
     Dates: start: 20010910

REACTIONS (11)
  - Thyroid cancer [Recovered/Resolved]
  - Spinal column stenosis [Recovered/Resolved]
  - Arthropathy [Recovered/Resolved]
  - Bladder cancer [Recovered/Resolved]
  - Device related infection [Recovered/Resolved]
  - Sciatica [Unknown]
  - Diabetes mellitus [Not Recovered/Not Resolved]
  - Weight decreased [Recovered/Resolved]
  - Back pain [Recovered/Resolved]
  - Back disorder [Not Recovered/Not Resolved]
  - Chills [Recovered/Resolved]
